FAERS Safety Report 5460866-3 (Version None)
Quarter: 2007Q3

REPORT INFORMATION
  Report Type: 
  Country: None (occurrence: None)
  Receive Date: 20070918
  Receipt Date: 20070907
  Transmission Date: 20080115
  Serious: Yes (Life-Threatening, Hospitalization)
  Sender: FDA-Public Use
  Company Number: 6013945

PATIENT
  Age: 67 Year
  Sex: Female

DRUGS (4)
  1. BISOPROLOL FUMARATE [Suspect]
     Indication: CARDIOVASCULAR DISORDER
     Dosage: 5 MG (5 MG, 1 IN 1 D) ORAL
     Route: 048
  2. ENALAPRIL MALEATE [Suspect]
     Indication: CARDIOVASCULAR DISORDER
     Dosage: 10 MG (10 MG, 1 IN 1 D)
  3. ISOSORBIDE MONONITRATE [Suspect]
     Indication: CARDIOVASCULAR DISORDER
  4. BUMETANIDE [Suspect]
     Indication: CARDIOVASCULAR DISORDER
     Dosage: 2 MG (2 MG, 1 IN 1 D)

REACTIONS (11)
  - BLOOD PRESSURE SYSTOLIC DECREASED [None]
  - BRADYCARDIA [None]
  - DIALYSIS [None]
  - DIARRHOEA [None]
  - ELECTROCARDIOGRAM QRS COMPLEX PROLONGED [None]
  - HYPERKALAEMIA [None]
  - LOSS OF CONSCIOUSNESS [None]
  - RENAL FAILURE ACUTE [None]
  - SHOCK [None]
  - SINOATRIAL BLOCK [None]
  - UNRESPONSIVE TO STIMULI [None]
